FAERS Safety Report 9067421 (Version 1)
Quarter: 2013Q1

REPORT INFORMATION
  Report Type: Spontaneous
  Country: EC (occurrence: EC)
  Receive Date: 20130129
  Receipt Date: 20130129
  Transmission Date: 20140127
  Serious: Yes (Death)
  Sender: FDA-Public Use
  Company Number: PHHY2013EC007962

PATIENT
  Age: 55 None
  Sex: Female

DRUGS (3)
  1. GALVUS MET [Suspect]
     Dosage: 1 DF, (500 MG MET AND 50 MG VILDA), UNK
     Dates: start: 201104
  2. DIOVAN [Suspect]
     Dosage: 160 MG, UNK
     Dates: start: 201209
  3. EXFORGE [Suspect]
     Dosage: 1 DF, (160 MG VALS AND 5 MG AMLO), UNK
     Dates: start: 201210

REACTIONS (1)
  - Infarction [Fatal]
